FAERS Safety Report 4333521-0 (Version None)
Quarter: 2004Q2

REPORT INFORMATION
  Report Type: 
  Country: None (occurrence: None)
  Receive Date: 20040401
  Receipt Date: 20040316
  Transmission Date: 20050107
  Serious: Yes (Hospitalization)
  Sender: FDA-Public Use
  Company Number: 191326

PATIENT
  Age: 64 Year
  Sex: Female
  Weight: 92.9874 kg

DRUGS (12)
  1. AVONEX [Suspect]
     Indication: MULTIPLE SCLEROSIS
     Dosage: 30 MCG QW IM
     Route: 030
     Dates: start: 19960901
  2. BACLOFEN [Concomitant]
  3. CLONAZEPAM [Concomitant]
  4. ATENOLOL [Concomitant]
  5. MECLIZINE [Concomitant]
  6. MICRO-K [Concomitant]
  7. NITROSTAT [Concomitant]
  8. CALCIUM [Concomitant]
  9. VITAMIN E [Concomitant]
  10. MULTI-VITAMINS [Concomitant]
  11. HYDROXYZINE [Concomitant]
  12. VERAPAMIL [Concomitant]

REACTIONS (15)
  - ABDOMINAL PAIN [None]
  - ADHESION [None]
  - ASTHENIA [None]
  - ASTHMA [None]
  - BRONCHITIS [None]
  - CIRCULATORY COLLAPSE [None]
  - CONDITION AGGRAVATED [None]
  - DEPRESSION [None]
  - FALL [None]
  - FATIGUE [None]
  - GASTROOESOPHAGEAL REFLUX DISEASE [None]
  - INTESTINAL OBSTRUCTION [None]
  - MULTIPLE SCLEROSIS [None]
  - OEDEMA PERIPHERAL [None]
  - URINARY INCONTINENCE [None]
